FAERS Safety Report 8521305-9 (Version None)
Quarter: 2012Q3

REPORT INFORMATION
  Report Type: 
  Country: None (occurrence: None)
  Receive Date: 20120719
  Receipt Date: 20120713
  Transmission Date: 20120928
  Serious: Yes (Death, Hospitalization)
  Sender: FDA-Public Use
  Company Number: US-CELGENEUS-163-21880-12064010

PATIENT
  Sex: Female

DRUGS (1)
  1. REVLIMID [Suspect]
     Dosage: 10 MILLIGRAM
     Route: 048
     Dates: start: 20120601

REACTIONS (6)
  - DEATH [None]
  - RASH [None]
  - BLOOD GLUCOSE INCREASED [None]
  - ABASIA [None]
  - KIDNEY INFECTION [None]
  - PLATELET COUNT DECREASED [None]
